FAERS Safety Report 23104046 (Version 1)
Quarter: 2023Q4

REPORT INFORMATION
  Report Type: Spontaneous
  Country: US (occurrence: None)
  Receive Date: 20231022
  Receipt Date: 20231022
  Transmission Date: 20240110
  Serious: Yes (Hospitalization)
  Sender: FDA-Public Use
  Company Number: None

PATIENT
  Age: 47 Year
  Sex: Female
  Weight: 71 kg

DRUGS (1)
  1. ZOLMITRIPTAN [Suspect]
     Active Substance: ZOLMITRIPTAN
     Route: 048
     Dates: start: 20220810, end: 20220825

REACTIONS (2)
  - Angioedema [None]
  - Anxiety [None]

NARRATIVE: CASE EVENT DATE: 20220824
